FAERS Safety Report 4707165-2 (Version None)
Quarter: 2005Q3

REPORT INFORMATION
  Report Type: 
  Country: None (occurrence: None)
  Receive Date: 20050706
  Receipt Date: 20050623
  Transmission Date: 20060218
  Serious: Yes (Congenital Anomaly, Other)
  Sender: FDA-Public Use
  Company Number: US-JNJFOC-20050606991

PATIENT

DRUGS (4)
  1. REMICADE [Suspect]
     Route: 008
  2. REMICADE [Suspect]
     Indication: CROHN'S DISEASE
     Route: 008
  3. PENTASA [Concomitant]
  4. IMURAN [Concomitant]

REACTIONS (1)
  - FOETAL DISORDER [None]
